FAERS Safety Report 21150826 (Version 1)
Quarter: 2022Q3

REPORT INFORMATION
  Report Type: Spontaneous
  Country: US (occurrence: US)
  Receive Date: 20220729
  Receipt Date: 20220729
  Transmission Date: 20221027
  Serious: Yes (Hospitalization)
  Sender: FDA-Public Use
  Company Number: US-BIOCODEX2-2022000873

PATIENT

DRUGS (1)
  1. DIACOMIT [Suspect]
     Active Substance: STIRIPENTOL
     Indication: Severe myoclonic epilepsy of infancy
     Dosage: TAKE 4 CAPSULES (1,000 MG TOTAL) BY MOUTH 2 TIMES A DAY
     Route: 048

REACTIONS (2)
  - Surgery [Unknown]
  - Product use in unapproved indication [Unknown]
